FAERS Safety Report 23551101 (Version 1)
Quarter: 2024Q1

REPORT INFORMATION
  Report Type: Spontaneous
  Country: KR (occurrence: KR)
  Receive Date: 20240222
  Receipt Date: 20240222
  Transmission Date: 20240409
  Serious: Yes (Death, Other)
  Sender: FDA-Public Use
  Company Number: KR-TAKEDA-2024TUS016001

PATIENT
  Age: 35 Year
  Sex: Male

DRUGS (4)
  1. LIVTENCITY [Suspect]
     Active Substance: MARIBAVIR
     Indication: Cytomegalovirus infection
     Dosage: UNK
     Route: 065
     Dates: start: 20240109, end: 20240122
  2. TACROLIMUS [Concomitant]
     Active Substance: TACROLIMUS
     Dosage: UNK
     Route: 065
  3. METHYLPREDNISOLONE [Concomitant]
     Active Substance: METHYLPREDNISOLONE
     Indication: Graft versus host disease
     Dosage: UNK
     Route: 065
     Dates: start: 202312, end: 202401
  4. FOSCARNET [Concomitant]
     Active Substance: FOSCARNET
     Dosage: UNK
     Route: 065
     Dates: start: 202312, end: 202401

REACTIONS (4)
  - Graft versus host disease [Fatal]
  - Escherichia infection [Unknown]
  - Pathogen resistance [Unknown]
  - Septic shock [Unknown]

NARRATIVE: CASE EVENT DATE: 20240110
